FAERS Safety Report 9262945 (Version 1)
Quarter: 2013Q2

REPORT INFORMATION
  Report Type: Spontaneous
  Country: BR (occurrence: BR)
  Receive Date: 20130430
  Receipt Date: 20130430
  Transmission Date: 20140414
  Serious: Yes (Death, Hospitalization)
  Sender: FDA-Public Use
  Company Number: BR-PFIZER INC-2013132971

PATIENT
  Sex: Male

DRUGS (1)
  1. FRONTAL [Suspect]
     Dosage: 0.5 MG, 2X/DAY (ONE TABLET, TWICE A DAY)
     Route: 048

REACTIONS (1)
  - Bone cancer [Fatal]
